FAERS Safety Report 23938028 (Version 1)
Quarter: 2024Q2

REPORT INFORMATION
  Report Type: Spontaneous
  Country: NL (occurrence: NL)
  Receive Date: 20240604
  Receipt Date: 20240604
  Transmission Date: 20240716
  Serious: Yes (Life-Threatening)
  Sender: FDA-Public Use
  Company Number: None

PATIENT
  Age: 26 Year
  Sex: Female
  Weight: 59 kg

DRUGS (3)
  1. ZOLPIDEM [Suspect]
     Active Substance: ZOLPIDEM TARTRATE
     Indication: Sleep disorder
     Dosage: 20 MILLIGRAM (2X 10 MG)
     Route: 065
     Dates: start: 20220110
  2. OXAZEPAM [Concomitant]
     Active Substance: OXAZEPAM
     Dosage: TABLET, 10 MG (MILLIGRAM)
     Route: 065
  3. DIAZEPAM [Concomitant]
     Active Substance: DIAZEPAM
     Dosage: TABLET, 5 MG (MILLIGRAM)
     Route: 065

REACTIONS (5)
  - Intentional self-injury [Not Recovered/Not Resolved]
  - Feeling abnormal [Not Recovered/Not Resolved]
  - Disinhibition [Unknown]
  - Feeling drunk [Unknown]
  - Restlessness [Not Recovered/Not Resolved]
